FAERS Safety Report 25084312 (Version 1)
Quarter: 2025Q1

REPORT INFORMATION
  Report Type: Spontaneous
  Country: GB (occurrence: GB)
  Receive Date: 20250317
  Receipt Date: 20250317
  Transmission Date: 20250409
  Serious: Yes (Disabling)
  Sender: TORRENT PHARMA INC.
  Company Number: None

PATIENT
  Age: 60 Year
  Sex: Male
  Weight: 85 kg

DRUGS (1)
  1. ESCITALOPRAM [Suspect]
     Active Substance: ESCITALOPRAM OXALATE
     Indication: Product used for unknown indication
     Dosage: 5 MG ONCE DAILY IN THE EVENING
     Dates: end: 20150601

REACTIONS (5)
  - Sexual dysfunction [Not Recovered/Not Resolved]
  - Hypohidrosis [Unknown]
  - Withdrawal syndrome [Unknown]
  - Aphantasia [Unknown]
  - Cognitive disorder [Unknown]

NARRATIVE: CASE EVENT DATE: 20150601
